FAERS Safety Report 8958309 (Version 1)
Quarter: 2012Q4

REPORT INFORMATION
  Report Type: 
  Country: NL (occurrence: NL)
  Receive Date: 20121210
  Receipt Date: 20121210
  Transmission Date: 20130627
  Serious: Yes (Hospitalization)
  Sender: FDA-Public Use
  Company Number: NL-TEVA-373323ISR

PATIENT
  Age: 50 Year
  Sex: Female
  Weight: 85 kg

DRUGS (1)
  1. COPAXONE [Suspect]
     Indication: MULTIPLE SCLEROSIS RELAPSE
     Dosage: 20 Milligram Daily;
     Route: 058
     Dates: start: 20111026, end: 20111028

REACTIONS (5)
  - Hypersensitivity [Recovered/Resolved]
  - Blindness transient [Recovered/Resolved with Sequelae]
  - Blister [Recovered/Resolved]
  - Arrhythmia [Recovered/Resolved]
  - Malaise [Recovered/Resolved]
